FAERS Safety Report 15708250 (Version 1)
Quarter: 2018Q4

REPORT INFORMATION
  Report Type: Spontaneous
  Country: US (occurrence: US)
  Receive Date: 20181127
  Receipt Date: 20181127
  Transmission Date: 20190205
  Serious: Yes (Other)
  Sender: FDA-Public Use
  Company Number: None

PATIENT
  Age: 36 Year
  Sex: Female
  Weight: 47.63 kg

DRUGS (1)
  1. LAMOTRIGINE, 200 MG NORTHSTAR [Suspect]
     Active Substance: LAMOTRIGINE

REACTIONS (1)
  - Therapeutic response changed [None]
